FAERS Safety Report 11294811 (Version 1)
Quarter: 2015Q3

REPORT INFORMATION
  Report Type: Spontaneous
  Country: GR (occurrence: GR)
  Receive Date: 20150723
  Receipt Date: 20150723
  Transmission Date: 20151125
  Serious: Yes (Other)
  Sender: FDA-Public Use
  Company Number: GR-ROCHE-1611576

PATIENT
  Age: 44 Year
  Sex: Female

DRUGS (1)
  1. MABTHERA [Suspect]
     Active Substance: RITUXIMAB
     Indication: RHEUMATOID ARTHRITIS
     Route: 042
     Dates: start: 201503

REACTIONS (11)
  - Drug ineffective [Unknown]
  - Pain [Recovered/Resolved]
  - Feeling abnormal [Recovered/Resolved]
  - Pruritus [Recovered/Resolved]
  - Dizziness [Recovered/Resolved]
  - Tonsillar hypertrophy [Recovered/Resolved]
  - Tachycardia [Recovered/Resolved]
  - Tinnitus [Not Recovered/Not Resolved]
  - Hypotension [Recovered/Resolved]
  - Stress [Recovered/Resolved]
  - Head discomfort [Recovered/Resolved]
